FAERS Safety Report 4456138-6 (Version None)
Quarter: 2004Q3

REPORT INFORMATION
  Report Type: 
  Country: None (occurrence: None)
  Receive Date: 20040920
  Receipt Date: 20040906
  Transmission Date: 20050211
  Serious: Yes (Hospitalization)
  Sender: FDA-Public Use
  Company Number: 2004063199

PATIENT
  Age: 24 Year
  Sex: Female

DRUGS (1)
  1. ZELDOX (CAPSULES) (ZIPRASIDONE) [Suspect]
     Indication: ILL-DEFINED DISORDER
     Dosage: 840 MG (840 MG, 1 IN 1 D), ORAL
     Route: 048

REACTIONS (2)
  - OVERDOSE [None]
  - REFUSAL OF TREATMENT BY PATIENT [None]
